FAERS Safety Report 6206100-8 (Version None)
Quarter: 2009Q2

REPORT INFORMATION
  Report Type: 
  Country: None (occurrence: None)
  Receive Date: 20090528
  Receipt Date: 20090522
  Transmission Date: 20091009
  Serious: Yes (Death, Hospitalization)
  Sender: FDA-Public Use
  Company Number: US-BRISTOL-MYERS SQUIBB COMPANY-14637334

PATIENT
  Age: 54 Year
  Sex: Male
  Weight: 78 kg

DRUGS (6)
  1. CISPLATIN [Suspect]
     Indication: HEAD AND NECK CANCER
     Dosage: CISPLATIN ON DAYS 1 + 22: 201MG IV EACH DAY,STARTED IN 24-NOV-2008
     Route: 042
     Dates: start: 20081217, end: 20081217
  2. RADIATION THERAPY [Suspect]
     Indication: HEAD AND NECK CANCER
     Dosage: 1DF=70GY.RADIAT:7OGY IN 35 FRACTS OVER43DAYS;NO.OF FRACTNS-35;NO.OF ELAPSED DAYS-43,INITON24NOV09
     Dates: start: 20090106, end: 20090106
  3. LABETALOL HCL [Concomitant]
     Route: 048
  4. PRILOSEC [Concomitant]
     Route: 048
  5. FENTANYL [Concomitant]
     Route: 062
  6. OXYCODONE HCL [Concomitant]
     Indication: PAIN
     Dosage: 1 DF = 5MG PER ML.FREQ-Q 4H.
     Route: 048

REACTIONS (2)
  - ANOXIC ENCEPHALOPATHY [None]
  - PULMONARY HAEMORRHAGE [None]
